FAERS Safety Report 25847504 (Version 2)
Quarter: 2025Q4

REPORT INFORMATION
  Report Type: Other
  Country: US (occurrence: US)
  Receive Date: 20250925
  Receipt Date: 20251009
  Transmission Date: 20260118
  Serious: No
  Sender: CHEMI SPA
  Company Number: US-CHEMI SPA-2185285

PATIENT
  Age: 50 Year
  Sex: Male

DRUGS (3)
  1. DECITABINE [Suspect]
     Active Substance: DECITABINE
     Indication: Chronic myeloid leukaemia
  2. PONATINIB [Suspect]
     Active Substance: PONATINIB
  3. VENETOCLAX [Suspect]
     Active Substance: VENETOCLAX

REACTIONS (2)
  - Hypertransaminasaemia [Unknown]
  - Off label use [Unknown]
